FAERS Safety Report 8918720 (Version 1)
Quarter: 2012Q4

REPORT INFORMATION
  Report Type: 
  Country: US (occurrence: US)
  Receive Date: 20121120
  Receipt Date: 20121120
  Transmission Date: 20130627
  Serious: No
  Sender: FDA-Public Use
  Company Number: US-ASTRAZENECA-2012SE20230

PATIENT
  Sex: Female

DRUGS (1)
  1. NEXIUM [Suspect]
     Indication: GASTROOESOPHAGEAL REFLUX DISEASE
     Route: 048
     Dates: start: 2008, end: 2009

REACTIONS (5)
  - Gastrooesophageal reflux disease [Unknown]
  - Dysphagia [Unknown]
  - Throat irritation [Unknown]
  - Abdominal discomfort [Unknown]
  - Intentional drug misuse [Unknown]
